FAERS Safety Report 6263855-4 (Version None)
Quarter: 2009Q3

REPORT INFORMATION
  Report Type: 
  Country: None (occurrence: None)
  Receive Date: 20090701
  Receipt Date: 20080714
  Transmission Date: 20100115
  Serious: Yes (Other)
  Sender: FDA-Public Use
  Company Number: 174699USA

PATIENT
  Sex: Female

DRUGS (1)
  1. NABUMETONE [Suspect]
     Dosage: (500 MG), ORAL
     Route: 048

REACTIONS (3)
  - DRUG HYPERSENSITIVITY [None]
  - PHARYNGEAL OEDEMA [None]
  - THROAT TIGHTNESS [None]
